FAERS Safety Report 11472083 (Version 4)
Quarter: 2016Q2

REPORT INFORMATION
  Report Type: Spontaneous
  Country: SE (occurrence: SE)
  Receive Date: 20150908
  Receipt Date: 20160606
  Transmission Date: 20160815
  Serious: Yes (Disabling, Other)
  Sender: FDA-Public Use
  Company Number: SE-BRISTOL-MYERS SQUIBB COMPANY-BMS-2015-059703

PATIENT
  Age: 52 Year
  Sex: Female

DRUGS (2)
  1. ABILIFY [Suspect]
     Active Substance: ARIPIPRAZOLE
     Dosage: UNK
     Route: 065
     Dates: start: 201507
  2. ABILIFY [Suspect]
     Active Substance: ARIPIPRAZOLE
     Indication: BIPOLAR DISORDER
     Dosage: 1 DF, UNK
     Route: 065
     Dates: start: 201108

REACTIONS (3)
  - Leg amputation [Unknown]
  - Pneumonia [Unknown]
  - Embolism venous [Recovered/Resolved with Sequelae]

NARRATIVE: CASE EVENT DATE: 20150210
